FAERS Safety Report 9838697 (Version 1)
Quarter: 2013Q4

REPORT INFORMATION
  Report Type: Spontaneous
  Country: US (occurrence: None)
  Receive Date: 20131206
  Receipt Date: 20131206
  Transmission Date: 20140711
  Serious: Yes (Other)
  Sender: FDA-Public Use
  Company Number: 386644

PATIENT
  Age: 47 Year
  Sex: Female
  Weight: 79.4 kg

DRUGS (4)
  1. NOVOLIN R [Suspect]
     Indication: DIABETIC KETOACIDOSIS
     Route: 042
     Dates: start: 20130201, end: 20130201
  2. NOVOLOG (INSULIN ASPART) SOLUTION FOR INJECTION, 100U/ML [Suspect]
     Indication: TYPE 1 DIABETES MELLITUS
     Dosage: SLIDING SCALE, SUBCUTANEOUS
     Route: 058
     Dates: start: 2005
  3. NOVOLIN N [Suspect]
     Indication: TYPE 1 DIABETES MELLITUS
     Dosage: 30 U, BID, SUBCUTANEOUS
     Route: 058
     Dates: start: 2003
  4. SYNTHROID (LEVOTHYROXINE SODIUM) [Concomitant]

REACTIONS (1)
  - Anaphylactic reaction [None]
